FAERS Safety Report 20094212 (Version 1)
Quarter: 2021Q4

REPORT INFORMATION
  Report Type: Report from Study
  Country: US (occurrence: US)
  Receive Date: 20211122
  Receipt Date: 20211122
  Transmission Date: 20220303
  Serious: Yes (Death, Other)
  Sender: FDA-Public Use
  Company Number: US-CHIESI-2021CHF00017

PATIENT
  Age: 66 Year
  Sex: Female
  Weight: 81 kg

DRUGS (2)
  1. DEFERIPRONE [Suspect]
     Active Substance: DEFERIPRONE
     Indication: Sickle cell disease
     Dosage: 6 MILLIGRAM/KILOGRAM, QD
     Route: 048
     Dates: end: 2020
  2. DEFERIPRONE [Suspect]
     Active Substance: DEFERIPRONE
     Indication: Haemochromatosis
     Dosage: 28 MILLIGRAM/KILOGRAM, TID
     Route: 048
     Dates: start: 20190320

REACTIONS (1)
  - Death [Fatal]

NARRATIVE: CASE EVENT DATE: 20201229
